FAERS Safety Report 15621732 (Version 1)
Quarter: 2018Q4

REPORT INFORMATION
  Report Type: Spontaneous
  Country: US (occurrence: US)
  Receive Date: 20181109
  Receipt Date: 20181109
  Transmission Date: 20190205
  Serious: Yes (Hospitalization)
  Sender: FDA-Public Use
  Company Number: None

PATIENT
  Age: 13 Year
  Sex: Male
  Weight: 38.6 kg

DRUGS (7)
  1. ONCASPAR [Suspect]
     Active Substance: PEGASPARGASE
     Dates: end: 20181029
  2. HYDROCORTISONE. [Suspect]
     Active Substance: HYDROCORTISONE
     Dates: end: 20181026
  3. CYTARABINE. [Suspect]
     Active Substance: CYTARABINE
     Dates: end: 20181026
  4. METHOTREXATE. [Suspect]
     Active Substance: METHOTREXATE
     Dates: end: 20181026
  5. DEXAMETHASONE. [Suspect]
     Active Substance: DEXAMETHASONE
     Dates: end: 20181031
  6. MITOXANTRONE HYDROCHLORIDE. [Suspect]
     Active Substance: MITOXANTRONE HYDROCHLORIDE
     Dates: end: 20181014
  7. VINCRISTINE SULFATE. [Suspect]
     Active Substance: VINCRISTINE SULFATE
     Dates: end: 20181027

REACTIONS (15)
  - Neutropenia [None]
  - Tachycardia [None]
  - Pulmonary alveolar haemorrhage [None]
  - Left ventricular dysfunction [None]
  - Thrombocytopenia [None]
  - Bacteraemia [None]
  - Leptotrichia infection [None]
  - Blood culture positive [None]
  - Fungal infection [None]
  - Urine output decreased [None]
  - Discomfort [None]
  - Transfusion [None]
  - Hypotension [None]
  - Pleural effusion [None]
  - Cardiac arrest [None]

NARRATIVE: CASE EVENT DATE: 20181101
